FAERS Safety Report 8767518 (Version 1)
Quarter: 2012Q4

REPORT INFORMATION
  Report Type: 
  Country: US (occurrence: US)
  Receive Date: 20120904
  Receipt Date: 20120904
  Transmission Date: 20130627
  Serious: Yes (Death)
  Sender: FDA-Public Use
  Company Number: US-CELGENEUS-163-20785-09051418

PATIENT
  Age: 75 Year
  Sex: Male

DRUGS (4)
  1. THALOMID [Suspect]
     Indication: MULTIPLE MYELOMA
     Dosage: 100 Milligram
     Route: 048
     Dates: start: 200904, end: 200905
  2. THALOMID [Suspect]
     Dosage: 100 - 200 mg
     Route: 048
     Dates: start: 200601, end: 200607
  3. THALOMID [Suspect]
     Dosage: 50 Milligram
     Route: 048
     Dates: start: 200902, end: 200904
  4. REVLIMID [Suspect]
     Indication: MULTIPLE MYELOMA
     Dosage: 15 Milligram
     Route: 048
     Dates: end: 200811

REACTIONS (1)
  - Plasma cell myeloma [Fatal]
